FAERS Safety Report 11638445 (Version 1)
Quarter: 2015Q4

REPORT INFORMATION
  Report Type: Report from Study
  Country: GB (occurrence: GB)
  Receive Date: 20151016
  Receipt Date: 20151016
  Transmission Date: 20160304
  Serious: Yes (Other)
  Sender: FDA-Public Use
  Company Number: GB-BRISTOL-MYERS SQUIBB COMPANY-BMS-2015-018519

PATIENT
  Age: 36 Year
  Sex: Female

DRUGS (1)
  1. ABATACEPT [Suspect]
     Active Substance: ABATACEPT
     Indication: RHEUMATOID ARTHRITIS
     Dosage: 125 MG, QWK
     Route: 058
     Dates: start: 20141229

REACTIONS (5)
  - Herpes zoster [Unknown]
  - Infection [Unknown]
  - Tooth infection [Unknown]
  - Lower respiratory tract infection [Unknown]
  - Oral surgery [Unknown]

NARRATIVE: CASE EVENT DATE: 20150804
